FAERS Safety Report 5192684-8 (Version None)
Quarter: 2006Q4

REPORT INFORMATION
  Report Type: 
  Country: None (occurrence: None)
  Receive Date: 20061220
  Receipt Date: 20061211
  Transmission Date: 20070319
  Serious: Yes (Hospitalization, Other)
  Sender: FDA-Public Use
  Company Number: 2005071980

PATIENT
  Age: 59 Year
  Sex: Male
  Weight: 149.687 kg

DRUGS (1)
  1. BEXTRA [Suspect]
     Indication: OSTEOARTHRITIS
     Dosage: 40 MG (20 MG, 2 IN 1 D)
     Dates: start: 20020501

REACTIONS (6)
  - AMNESIA [None]
  - CARDIOGENIC SHOCK [None]
  - CONDITION AGGRAVATED [None]
  - DEEP VEIN THROMBOSIS [None]
  - OSTEOARTHRITIS [None]
  - PULMONARY EMBOLISM [None]
